FAERS Safety Report 15230598 (Version 2)
Quarter: 2019Q1

REPORT INFORMATION
  Report Type: Report from Study
  Country: US (occurrence: US)
  Receive Date: 20180802
  Receipt Date: 20190307
  Transmission Date: 20190417
  Serious: Yes (Other)
  Sender: FDA-Public Use
  Company Number: US-ROCHE-2141343

PATIENT
  Age: 66 Year
  Sex: Female
  Weight: 97.25 kg

DRUGS (34)
  1. SYNTHROID [Concomitant]
     Active Substance: LEVOTHYROXINE SODIUM
  2. XANAX [Concomitant]
     Active Substance: ALPRAZOLAM
     Route: 048
  3. CYTOMEL [Concomitant]
     Active Substance: LIOTHYRONINE SODIUM
     Route: 048
  4. NEURONTIN [Concomitant]
     Active Substance: GABAPENTIN
     Route: 048
  5. LACTOBACILLUS RHAMNOSUS [Concomitant]
     Active Substance: LACTOBACILLUS RHAMNOSUS
  6. AMBIEN [Concomitant]
     Active Substance: ZOLPIDEM TARTRATE
  7. TAGAMET HB [Concomitant]
     Active Substance: CIMETIDINE
     Route: 048
  8. ZOFRAN [Concomitant]
     Active Substance: ONDANSETRON HYDROCHLORIDE
     Route: 048
  9. IMITREX [Concomitant]
     Active Substance: SUMATRIPTAN SUCCINATE
     Route: 048
  10. MIRALAX [Concomitant]
     Active Substance: POLYETHYLENE GLYCOL 3350
  11. KLONOPIN [Suspect]
     Active Substance: CLONAZEPAM
     Indication: PRODUCT USED FOR UNKNOWN INDICATION
     Dosage: 1 TABLET DAILY BY MOUTH AT BEDTIME ;ONGOING:YES
     Route: 048
  12. DIFLUCAN [Concomitant]
     Active Substance: FLUCONAZOLE
  13. FLEXERIL [Concomitant]
     Active Substance: CYCLOBENZAPRINE HYDROCHLORIDE
  14. CARAFATE [Concomitant]
     Active Substance: SUCRALFATE
     Route: 048
  15. DOXEPIN [Concomitant]
     Active Substance: DOXEPIN
     Route: 048
  16. NORCO [Concomitant]
     Active Substance: ACETAMINOPHEN\HYDROCODONE BITARTRATE
     Route: 065
  17. VITAMIN B12 [Concomitant]
     Active Substance: CYANOCOBALAMIN
  18. NAMENDA [Concomitant]
     Active Substance: MEMANTINE HYDROCHLORIDE
     Route: 048
  19. VALTREX [Concomitant]
     Active Substance: VALACYCLOVIR HYDROCHLORIDE
     Route: 048
  20. ALLEGRA [Concomitant]
     Active Substance: FEXOFENADINE HYDROCHLORIDE
     Route: 065
  21. NUTROPIN AQ [Suspect]
     Active Substance: SOMATROPIN
     Indication: GROWTH HORMONE DEFICIENCY
     Dosage: ONGOING:YES, NUSPIN 10, 0.1 MG DOSING INCREMENTS, 7 INJECTIONS PER WEEK, DISPENSED 1 MONTH SUPPLY AN
     Route: 058
  22. ADVAIR HFA [Concomitant]
     Active Substance: FLUTICASONE PROPIONATE\SALMETEROL XINAFOATE
     Route: 065
  23. ZOFRAN [Concomitant]
     Active Substance: ONDANSETRON HYDROCHLORIDE
     Route: 065
  24. PATANOL [Concomitant]
     Active Substance: OLOPATADINE HYDROCHLORIDE
  25. NASONEX [Concomitant]
     Active Substance: MOMETASONE FUROATE
     Route: 045
  26. FLUOXETINE [Concomitant]
     Active Substance: FLUOXETINE HYDROCHLORIDE
     Route: 048
  27. ALLEGRA [Concomitant]
     Active Substance: FEXOFENADINE HYDROCHLORIDE
     Route: 048
  28. LEVOTHYROXINE. [Concomitant]
     Active Substance: LEVOTHYROXINE
     Route: 048
  29. BIOTIN [Concomitant]
     Active Substance: BIOTIN
     Route: 048
  30. OMNITROPE [Suspect]
     Active Substance: SOMATROPIN
     Indication: PRODUCT USED FOR UNKNOWN INDICATION
     Route: 065
  31. SINEQUAN [Concomitant]
     Active Substance: DOXEPIN HYDROCHLORIDE
     Route: 065
  32. PROTONIX [Concomitant]
     Active Substance: PANTOPRAZOLE SODIUM
  33. NUTROPIN AQ [Suspect]
     Active Substance: SOMATROPIN
     Route: 058
     Dates: start: 2013
  34. VAGIFEM [Concomitant]
     Active Substance: ESTRADIOL
     Route: 067

REACTIONS (33)
  - Blood glucose increased [Unknown]
  - Carpal tunnel syndrome [Unknown]
  - Nausea [Unknown]
  - Onychoclasis [Unknown]
  - Temperature intolerance [Unknown]
  - Ligament sprain [Unknown]
  - General physical health deterioration [Unknown]
  - Neutropenia [Unknown]
  - Fall [Unknown]
  - Arachnoid cyst [Unknown]
  - Amnesia [Unknown]
  - Malaise [Unknown]
  - Fatigue [Unknown]
  - Depression [Unknown]
  - Hot flush [Unknown]
  - Vision blurred [Unknown]
  - Concussion [Unknown]
  - Blood thyroid stimulating hormone decreased [Unknown]
  - Migraine [Unknown]
  - Headache [Unknown]
  - Vitamin D decreased [Unknown]
  - Dizziness [Unknown]
  - Libido decreased [Unknown]
  - Vulvovaginal dryness [Unknown]
  - Atrial flutter [Unknown]
  - Vertigo [Unknown]
  - Gastrointestinal motility disorder [Unknown]
  - Nocturia [Unknown]
  - Suicide attempt [Unknown]
  - Weight decreased [Unknown]
  - Infection [Unknown]
  - Hypotension [Unknown]
  - Alopecia [Unknown]

NARRATIVE: CASE EVENT DATE: 20170512
